FAERS Safety Report 17432786 (Version 1)
Quarter: 2020Q1

REPORT INFORMATION
  Report Type: Spontaneous
  Country: IT (occurrence: IT)
  Receive Date: 20200218
  Receipt Date: 20200218
  Transmission Date: 20200409
  Serious: Yes (Other)
  Sender: FDA-Public Use
  Company Number: IT-AUROBINDO-AUR-APL-2020-008126

PATIENT
  Age: 46 Year
  Sex: Female

DRUGS (3)
  1. NAEMIS [Concomitant]
     Indication: HORMONE REPLACEMENT THERAPY
     Dosage: 1 DOSAGE FORM, ONCE A DAY
     Route: 048
  2. AUGMENTIN [Suspect]
     Active Substance: AMOXICILLIN\CLAVULANATE POTASSIUM
     Indication: TOOTHACHE
     Dosage: 1 GRAM, EVERY WEEK
     Route: 048
     Dates: start: 20200121, end: 20200121
  3. IBUPROFEN FILM-COATED TABLETS [Suspect]
     Active Substance: IBUPROFEN
     Indication: TOOTHACHE
     Dosage: 400 MILLIGRAM,TOTAL
     Route: 048
     Dates: start: 20200121, end: 20200121

REACTIONS (1)
  - Lip swelling [Recovering/Resolving]

NARRATIVE: CASE EVENT DATE: 20200121
